FAERS Safety Report 19080219 (Version 3)
Quarter: 2021Q4

REPORT INFORMATION
  Report Type: Report from Study
  Country: US (occurrence: US)
  Receive Date: 20210331
  Receipt Date: 20211004
  Transmission Date: 20220303
  Serious: Yes (Hospitalization)
  Sender: FDA-Public Use
  Company Number: US-SA-SAC20210323001657

PATIENT
  Age: 66 Year
  Sex: Male

DRUGS (15)
  1. OXALIPLATIN [Suspect]
     Active Substance: OXALIPLATIN
     Indication: Oesophageal adenocarcinoma
     Dosage: 270 MG, DAY 1 Q21D
     Route: 042
     Dates: start: 20210201, end: 20210222
  2. OXALIPLATIN [Suspect]
     Active Substance: OXALIPLATIN
     Dosage: 85 MG, DAY 1 Q21D
     Route: 042
     Dates: start: 20210409
  3. TISLELIZUMAB [Suspect]
     Active Substance: TISLELIZUMAB
     Indication: Oesophageal adenocarcinoma
     Dosage: 200 MG, DAY 1 Q21D
     Route: 042
     Dates: start: 20210201, end: 20210222
  4. TISLELIZUMAB [Suspect]
     Active Substance: TISLELIZUMAB
     Dosage: 200 MG, DAY 1 Q21D
     Route: 042
     Dates: start: 20210409
  5. CAPECITABINE [Suspect]
     Active Substance: CAPECITABINE
     Indication: Oesophageal adenocarcinoma
     Dosage: 4000 MG, DAYS 1, 15, Q21D
     Route: 048
     Dates: start: 20210202, end: 20210305
  6. DKN-01 [Suspect]
     Active Substance: DKN-01
     Indication: Oesophageal adenocarcinoma
     Dosage: 300 MG, DAY 1, 15, Q21D
     Route: 042
     Dates: start: 20210201, end: 20210222
  7. DKN-01 [Suspect]
     Active Substance: DKN-01
     Dosage: 300 MG, DAY 1, 15, Q21D
     Route: 042
     Dates: start: 20210409
  8. COMPAZINE [Concomitant]
     Active Substance: PROCHLORPERAZINE MALEATE
     Dosage: UNK
     Dates: start: 20210201
  9. ONDANSETRON [Concomitant]
     Active Substance: ONDANSETRON
     Dosage: UNK
     Dates: start: 20210201
  10. VIAGRA [Concomitant]
     Active Substance: SILDENAFIL CITRATE
     Dosage: UNK
     Dates: start: 2011
  11. ELIQUIS [Concomitant]
     Active Substance: APIXABAN
     Indication: Pulmonary embolism
     Dosage: UNK
     Dates: start: 2020
  12. DRONABINOL [Concomitant]
     Active Substance: DRONABINOL
     Dosage: UNK
     Dates: start: 20210222
  13. FOSAPREPITANT [Concomitant]
     Active Substance: FOSAPREPITANT
     Dosage: UNK
     Dates: start: 20210222
  14. ALOXI [Concomitant]
     Active Substance: PALONOSETRON HYDROCHLORIDE
     Dosage: UNK
  15. LIPITOR [Concomitant]
     Active Substance: ATORVASTATIN CALCIUM
     Dosage: UNK
     Dates: start: 202011

REACTIONS (1)
  - Pulmonary embolism [Recovered/Resolved]

NARRATIVE: CASE EVENT DATE: 20210308
